FAERS Safety Report 20846915 (Version 1)
Quarter: 2022Q2

REPORT INFORMATION
  Report Type: Spontaneous
  Country: US (occurrence: US)
  Receive Date: 20220519
  Receipt Date: 20220519
  Transmission Date: 20220721
  Serious: No
  Sender: FDA-Public Use
  Company Number: US-BRISTOL-MYERS SQUIBB COMPANY-2022-025335

PATIENT

DRUGS (2)
  1. ELIQUIS [Suspect]
     Active Substance: APIXABAN
     Indication: Cerebrovascular accident prophylaxis
     Dosage: MWF ON DIALYSIS DAYS
  2. ELIQUIS [Suspect]
     Active Substance: APIXABAN
     Dosage: ALL OTHER DAYS

REACTIONS (1)
  - Intentional product use issue [Unknown]
